FAERS Safety Report 15889153 (Version 1)
Quarter: 2019Q1

REPORT INFORMATION
  Report Type: Spontaneous
  Country: US (occurrence: US)
  Receive Date: 20190109
  Receipt Date: 20190109
  Transmission Date: 20190417
  Serious: No
  Sender: FDA-Public Use
  Company Number: None

PATIENT
  Age: 55 Year
  Sex: Female

DRUGS (1)
  1. FORTEO [Suspect]
     Active Substance: TERIPARATIDE
     Indication: OSTEOPOROSIS
     Route: 058
     Dates: start: 20171024

REACTIONS (4)
  - Abnormal behaviour [None]
  - Anxiety [None]
  - Hyperhidrosis [None]
  - Memory impairment [None]

NARRATIVE: CASE EVENT DATE: 201812
